FAERS Safety Report 4580644-7 (Version None)
Quarter: 2005Q1

REPORT INFORMATION
  Report Type: 
  Country: None (occurrence: None)
  Receive Date: 20050214
  Receipt Date: 20040504
  Transmission Date: 20050727
  Serious: Yes (Hospitalization)
  Sender: FDA-Public Use
  Company Number: US-GLAXOSMITHKLINE-A0509456A

PATIENT
  Age: 26 Year
  Sex: Female

DRUGS (3)
  1. LAMICTAL [Suspect]
     Indication: BIPOLAR DISORDER
     Route: 048
     Dates: start: 20040422, end: 20040503
  2. DEPAKOTE [Concomitant]
  3. ZOLOFT [Concomitant]

REACTIONS (10)
  - DERMATITIS EXFOLIATIVE [None]
  - GENITAL ERYTHEMA [None]
  - GENITAL PAIN [None]
  - MEDICATION ERROR [None]
  - OEDEMA GENITAL [None]
  - OVERDOSE [None]
  - PHOTODERMATOSIS [None]
  - PYREXIA [None]
  - RASH [None]
  - SKIN EXFOLIATION [None]
